FAERS Safety Report 6786259-4 (Version None)
Quarter: 2010Q2

REPORT INFORMATION
  Report Type: 
  Country: None (occurrence: None)
  Receive Date: 20100623
  Receipt Date: 20100617
  Transmission Date: 20101027
  Serious: Yes (Hospitalization)
  Sender: FDA-Public Use
  Company Number: US-BRACCO-002074

PATIENT
  Age: 17 Month
  Sex: Female

DRUGS (3)
  1. BARIUM SULFATE [Suspect]
     Indication: DIARRHOEA
     Dosage: CENTRAL VENOUS INJECTION DIRECTLY INTO THE SUPERIOR VENA CAVA
     Route: 042
  2. BARIUM SULFATE [Suspect]
     Indication: X-RAY WITH CONTRAST UPPER GASTROINTESTINAL TRACT
     Dosage: CENTRAL VENOUS INJECTION DIRECTLY INTO THE SUPERIOR VENA CAVA
     Route: 042
  3. BARIUM SULFATE [Suspect]
     Indication: VOMITING PROJECTILE
     Dosage: CENTRAL VENOUS INJECTION DIRECTLY INTO THE SUPERIOR VENA CAVA
     Route: 042

REACTIONS (4)
  - CHILLS [None]
  - INCORRECT ROUTE OF DRUG ADMINISTRATION [None]
  - PYREXIA [None]
  - VOMITING [None]
